FAERS Safety Report 6745056-6 (Version None)
Quarter: 2010Q2

REPORT INFORMATION
  Report Type: 
  Country: None (occurrence: None)
  Receive Date: 20100527
  Receipt Date: 20100521
  Transmission Date: 20101027
  Serious: Yes (Hospitalization)
  Sender: FDA-Public Use
  Company Number: DE-JNJCH-2010012570

PATIENT
  Age: 59 Year
  Sex: Female
  Weight: 65 kg

DRUGS (7)
  1. CETIRIZINE HYDROCHLORIDE [Suspect]
     Indication: RHINITIS ALLERGIC
     Dosage: TEXT:10MG ONCE
     Route: 048
     Dates: start: 20100502, end: 20100502
  2. ATACAND [Concomitant]
     Indication: HYPERTENSION
     Dosage: TEXT:16MG DAILY
     Route: 048
  3. BISOPROLOL [Concomitant]
     Indication: HYPERTENSION
     Dosage: TEXT:10MG DAILY
     Route: 048
  4. HYDROCHLOROTHIAZIDE [Concomitant]
     Indication: HYPERTENSION
     Dosage: TEXT:25MG DAILY
     Route: 048
  5. METFORMIN HYDROCHLORIDE [Concomitant]
     Indication: TYPE 2 DIABETES MELLITUS
     Dosage: TEXT:1000MG BID
     Route: 048
  6. AMARYL [Concomitant]
     Indication: TYPE 2 DIABETES MELLITUS
     Dosage: TEXT:1MG DAILY
     Route: 048
  7. SIMVASTATIN [Concomitant]
     Indication: HYPERCHOLESTEROLAEMIA
     Dosage: TEXT:20MG DAILY
     Route: 048

REACTIONS (6)
  - DEFAECATION URGENCY [None]
  - DIARRHOEA [None]
  - DIZZINESS [None]
  - FALL [None]
  - MALAISE [None]
  - SYNCOPE [None]
